FAERS Safety Report 6038421-6 (Version None)
Quarter: 2009Q1

REPORT INFORMATION
  Report Type: 
  Country: None (occurrence: None)
  Receive Date: 20090113
  Receipt Date: 20090113
  Transmission Date: 20090719
  Serious: No
  Sender: FDA-Public Use
  Company Number: None

PATIENT
  Sex: Female
  Weight: 64.77 kg

DRUGS (4)
  1. ISONIAZID [Suspect]
     Dosage: 300 MG TABLET 300 MG QD ORAL
     Route: 048
     Dates: start: 20071219, end: 20090112
  2. CALCIUM [Concomitant]
  3. ERGOCALCIFEROL [Concomitant]
  4. PYRIDOXINE HCL [Concomitant]

REACTIONS (1)
  - TRANSAMINASES INCREASED [None]
